APPROVED DRUG PRODUCT: IBANDRONATE SODIUM
Active Ingredient: IBANDRONATE SODIUM
Strength: EQ 150MG BASE
Dosage Form/Route: TABLET;ORAL
Application: A078997 | Product #001 | TE Code: AB
Applicant: DR REDDYS LABORATORIES LTD
Approved: Apr 30, 2012 | RLD: No | RS: Yes | Type: RX